FAERS Safety Report 11753910 (Version 1)
Quarter: 2015Q4

REPORT INFORMATION
  Report Type: Spontaneous
  Country: US (occurrence: US)
  Receive Date: 20151119
  Receipt Date: 20151119
  Transmission Date: 20160304
  Serious: Yes (Hospitalization)
  Sender: FDA-Public Use
  Company Number: US-TEVA-610715USA

PATIENT
  Age: 4 Year
  Sex: Male

DRUGS (2)
  1. VALPROIC ACID. [Suspect]
     Active Substance: VALPROIC ACID
     Route: 064
  2. DEPAKOTE [Suspect]
     Active Substance: DIVALPROEX SODIUM
     Dosage: 2000 MILLIGRAM DAILY;
     Route: 064

REACTIONS (3)
  - Pneumonia [Unknown]
  - Foetal exposure during pregnancy [Unknown]
  - Pulmonary vein stenosis [Unknown]
